FAERS Safety Report 6302365-2 (Version None)
Quarter: 2009Q3

REPORT INFORMATION
  Report Type: 
  Country: None (occurrence: None)
  Receive Date: 20090810
  Receipt Date: 20090730
  Transmission Date: 20100115
  Serious: Yes (Other)
  Sender: FDA-Public Use
  Company Number: PHHY2009BR32251

PATIENT
  Age: 11 Year
  Sex: Male

DRUGS (2)
  1. RITALIN LA [Suspect]
     Indication: ATTENTION DEFICIT/HYPERACTIVITY DISORDER
     Dosage: 20 MG, QD
     Route: 048
     Dates: end: 20090729
  2. TRILEPTAL [Concomitant]
     Indication: EPILEPSY
     Dosage: 300 MG, TWICE OR THRICE A DAY
     Route: 048

REACTIONS (1)
  - CONVULSION [None]
